FAERS Safety Report 8420369-0 (Version None)
Quarter: 2012Q2

REPORT INFORMATION
  Report Type: 
  Country: None (occurrence: None)
  Receive Date: 20120607
  Receipt Date: 20120531
  Transmission Date: 20120825
  Serious: Yes (Other)
  Sender: FDA-Public Use
  Company Number: JP-ABBOTT-12P-087-0939725-00

PATIENT
  Age: 43 Year
  Sex: Female

DRUGS (1)
  1. LEUPROLIDE ACETATE [Suspect]
     Indication: BLOOD GONADOTROPHIN ABNORMAL
     Route: 058
     Dates: end: 20091001

REACTIONS (1)
  - UTERINE HAEMORRHAGE [None]
